FAERS Safety Report 10870233 (Version 1)
Quarter: 2015Q1

REPORT INFORMATION
  Report Type: Report from Study
  Country: AU (occurrence: AU)
  Receive Date: 20150226
  Receipt Date: 20150226
  Transmission Date: 20150721
  Serious: Yes (Other)
  Sender: FDA-Public Use
  Company Number: AU-SA-2014SA097133

PATIENT
  Age: 72 Year
  Sex: Female

DRUGS (11)
  1. ARAVA [Suspect]
     Active Substance: LEFLUNOMIDE
     Indication: PRODUCT USED FOR UNKNOWN INDICATION
     Route: 048
     Dates: start: 20120115
  2. KRILL OIL [Concomitant]
     Active Substance: DIETARY SUPPLEMENT
  3. LIPITOR [Concomitant]
     Active Substance: ATORVASTATIN CALCIUM
  4. RAMIPRIL. [Concomitant]
     Active Substance: RAMIPRIL
  5. ACTONEL [Concomitant]
     Active Substance: RISEDRONATE SODIUM
  6. METHOTREXATE [Concomitant]
     Active Substance: METHOTREXATE
  7. NATRILIX [Concomitant]
     Active Substance: INDAPAMIDE
  8. PARACETAMOL [Concomitant]
     Active Substance: ACETAMINOPHEN
  9. IBUPROFEN. [Concomitant]
     Active Substance: IBUPROFEN
  10. PANADEINE FORTE [Suspect]
     Active Substance: ACETAMINOPHEN\CODEINE PHOSPHATE
     Route: 065
  11. PANADEINE FORTE [Concomitant]
     Active Substance: ACETAMINOPHEN\CODEINE PHOSPHATE

REACTIONS (6)
  - Synovial cyst [Not Recovered/Not Resolved]
  - Impaired work ability [Not Recovered/Not Resolved]
  - Unevaluable event [Not Recovered/Not Resolved]
  - Arthralgia [Not Recovered/Not Resolved]
  - Asthenia [Not Recovered/Not Resolved]
  - Rheumatoid arthritis [Not Recovered/Not Resolved]

NARRATIVE: CASE EVENT DATE: 20150204
